FAERS Safety Report 8592593-8 (Version None)
Quarter: 2012Q3

REPORT INFORMATION
  Report Type: 
  Country: None (occurrence: None)
  Receive Date: 20120814
  Receipt Date: 20120806
  Transmission Date: 20120928
  Serious: Yes (Life-Threatening)
  Sender: FDA-Public Use
  Company Number: IT-PFIZER INC-2012191613

PATIENT
  Age: 92 Year
  Sex: Female

DRUGS (7)
  1. COUMADIN [Concomitant]
     Dosage: UNK
  2. NEXIUM [Concomitant]
     Dosage: UNK
  3. LASIX [Concomitant]
     Dosage: UNK
  4. RAMIPRIL [Suspect]
     Indication: CARDIAC FAILURE
     Dosage: 2.5 MG, DAILY
     Route: 048
     Dates: start: 20100101, end: 20120730
  5. KANRENOL [Suspect]
     Indication: CARDIAC FAILURE
     Dosage: 100 MG, DAILY
     Route: 048
     Dates: start: 20100101, end: 20120730
  6. MEDROL [Concomitant]
     Dosage: UNK
  7. ALLOPURINOL [Concomitant]

REACTIONS (2)
  - RENAL FAILURE ACUTE [None]
  - HYPERKALAEMIA [None]
